FAERS Safety Report 17800060 (Version 2)
Quarter: 2020Q2

REPORT INFORMATION
  Report Type: Report from Study
  Country: US (occurrence: US)
  Receive Date: 20200518
  Receipt Date: 20200521
  Transmission Date: 20200714
  Serious: Yes (Hospitalization, Other)
  Sender: FDA-Public Use
  Company Number: US-ACTELION-A-NJ2015-113286

PATIENT
  Sex: Female
  Weight: 61.22 kg

DRUGS (9)
  1. NIFEDIPINE. [Concomitant]
     Active Substance: NIFEDIPINE
  2. VELETRI [Suspect]
     Active Substance: EPOPROSTENOL
     Indication: PULMONARY HYPERTENSION
     Dosage: 85.3 NG/KG, PER MIN
     Route: 042
  3. VELETRI [Suspect]
     Active Substance: EPOPROSTENOL
     Dosage: 80.36 NG/KG, PER MIN
     Route: 042
  4. VELETRI [Suspect]
     Active Substance: EPOPROSTENOL
     Dosage: 84.3 NG/KG, PER MIN
     Route: 042
  5. VELETRI [Suspect]
     Active Substance: EPOPROSTENOL
     Dosage: 65 NG/KG, PER MIN
     Route: 042
     Dates: start: 20110329
  6. VELETRI [Suspect]
     Active Substance: EPOPROSTENOL
     Dosage: 72 NG/KG, PER MIN
     Route: 042
  7. COUMADIN [Concomitant]
     Active Substance: WARFARIN SODIUM
  8. VELETRI [Suspect]
     Active Substance: EPOPROSTENOL
     Dosage: 81.35 NG/KG, PER MIN
     Route: 042
  9. TRACLEER [Concomitant]
     Active Substance: BOSENTAN
     Indication: PULMONARY HYPERTENSION
     Dosage: UNK
     Route: 048

REACTIONS (20)
  - Dyspnoea [Unknown]
  - Weight decreased [Unknown]
  - Chest pain [Unknown]
  - Dyspnoea exertional [Not Recovered/Not Resolved]
  - Fluid overload [Unknown]
  - Nasal congestion [Unknown]
  - Pain in jaw [Unknown]
  - Constipation [Unknown]
  - Decreased appetite [Unknown]
  - Diarrhoea [Not Recovered/Not Resolved]
  - Back pain [Unknown]
  - Unevaluable event [Unknown]
  - Condition aggravated [Unknown]
  - Palpitations [Unknown]
  - Flushing [Not Recovered/Not Resolved]
  - Device infusion issue [Unknown]
  - Device malfunction [Recovered/Resolved]
  - Cardiac failure [Unknown]
  - Feeling hot [Unknown]
  - Device use issue [Recovered/Resolved]
